FAERS Safety Report 15569165 (Version 1)
Quarter: 2018Q4

REPORT INFORMATION
  Report Type: Spontaneous
  Country: US (occurrence: US)
  Receive Date: 20181031
  Receipt Date: 20181031
  Transmission Date: 20190205
  Serious: No
  Sender: FDA-Public Use
  Company Number: US-SHIRE-US201841797

PATIENT
  Age: 21 Year
  Sex: Male
  Weight: 67 kg

DRUGS (1)
  1. GATTEX [Suspect]
     Active Substance: TEDUGLUTIDE\WATER
     Indication: PRODUCT USED FOR UNKNOWN INDICATION
     Dosage: 0.335 UNIT UNKNOWN, 1X/DAY:QD
     Route: 065
     Dates: start: 20151002

REACTIONS (2)
  - Stress [Unknown]
  - Product dose omission [Unknown]

NARRATIVE: CASE EVENT DATE: 20181024
